FAERS Safety Report 13759593 (Version 1)
Quarter: 2017Q3

REPORT INFORMATION
  Report Type: Spontaneous
  Country: GB (occurrence: GB)
  Receive Date: 20170717
  Receipt Date: 20170717
  Transmission Date: 20171127
  Serious: Yes (Other)
  Sender: FDA-Public Use
  Company Number: GB-009507513-1707GBR003192

PATIENT
  Age: 80 Year
  Sex: Male

DRUGS (13)
  1. EZETROL [Suspect]
     Active Substance: EZETIMIBE
     Indication: CARDIAC DISORDER
  2. EPILIM [Concomitant]
     Active Substance: VALPROATE SODIUM
  3. GTN [Concomitant]
     Active Substance: NITROGLYCERIN
     Dosage: FORMULATION: SPRAY
  4. OMEPRAZOLE. [Concomitant]
     Active Substance: OMEPRAZOLE
  5. ACETAMINOPHEN. [Concomitant]
     Active Substance: ACETAMINOPHEN
  6. ASPIRIN. [Concomitant]
     Active Substance: ASPIRIN
     Route: 048
  7. ATORVASTATIN [Concomitant]
     Active Substance: ATORVASTATIN
  8. EZETROL [Suspect]
     Active Substance: EZETIMIBE
     Indication: LIPIDS INCREASED
     Dosage: 10 MG, QD
     Route: 048
     Dates: start: 20000717
  9. RISPERIDONE. [Concomitant]
     Active Substance: RISPERIDONE
  10. METFORMIN [Concomitant]
     Active Substance: METFORMIN HYDROCHLORIDE
  11. BISOPROLOL [Concomitant]
     Active Substance: BISOPROLOL
  12. DIAZEPAM. [Concomitant]
     Active Substance: DIAZEPAM
  13. ISOSORBIDE MONONITRATE. [Concomitant]
     Active Substance: ISOSORBIDE MONONITRATE

REACTIONS (2)
  - Dementia [Unknown]
  - Dysphagia [Not Recovered/Not Resolved]

NARRATIVE: CASE EVENT DATE: 20170628
